FAERS Safety Report 5644713-2 (Version None)
Quarter: 2008Q1

REPORT INFORMATION
  Report Type: 
  Country: None (occurrence: None)
  Receive Date: 20080229
  Receipt Date: 20070626
  Transmission Date: 20080703
  Serious: No
  Sender: FDA-Public Use
  Company Number: A0655884A

PATIENT
  Sex: Male

DRUGS (5)
  1. VALTREX [Suspect]
     Dosage: 1G PER DAY
     Route: 048
     Dates: start: 20050101
  2. CYTOVENE [Suspect]
     Dosage: 500MG PER DAY
     Route: 048
     Dates: end: 20050101
  3. EPZICOM [Concomitant]
  4. KALETRA [Concomitant]
     Dosage: 2U TWICE PER DAY
  5. BACTRIM DS [Concomitant]

REACTIONS (2)
  - BLOOD CREATINE INCREASED [None]
  - CREATININE RENAL CLEARANCE DECREASED [None]
